FAERS Safety Report 7190753-4 (Version None)
Quarter: 2010Q4

REPORT INFORMATION
  Report Type: 
  Country: None (occurrence: None)
  Receive Date: 20101222
  Receipt Date: 20101222
  Transmission Date: 20110411
  Serious: Yes (Other)
  Sender: FDA-Public Use
  Company Number: None

PATIENT
  Sex: Female
  Weight: 100 kg

DRUGS (1)
  1. HIZENTRA [Suspect]
     Indication: NEUROPATHY PERIPHERAL
     Dosage: 20 GM EVERY 2 WEEKS SQ
     Route: 058
     Dates: start: 20101021, end: 20101221

REACTIONS (3)
  - ABASIA [None]
  - ASTHENIA [None]
  - TREMOR [None]
